FAERS Safety Report 7706950-2 (Version None)
Quarter: 2011Q3

REPORT INFORMATION
  Report Type: 
  Country: None (occurrence: None)
  Receive Date: 20110824
  Receipt Date: 20110822
  Transmission Date: 20111222
  Serious: Yes (Death, Hospitalization)
  Sender: FDA-Public Use
  Company Number: DE-GLAXOSMITHKLINE-D0072463A

PATIENT
  Sex: Male

DRUGS (3)
  1. DIALYSIS [Concomitant]
     Route: 065
     Dates: start: 20100409
  2. AVANDIA [Suspect]
     Indication: TYPE 2 DIABETES MELLITUS
     Dosage: 4MG PER DAY
     Route: 065
     Dates: start: 20040715, end: 20100916
  3. NEUROLEPTIC [Concomitant]
     Route: 065

REACTIONS (12)
  - ATRIAL FIBRILLATION [None]
  - PULMONARY HYPERTENSION [None]
  - CHEST DISCOMFORT [None]
  - HYPOTENSION [None]
  - MYOCARDIAL INFARCTION [None]
  - LEFT VENTRICULAR FAILURE [None]
  - DYSPNOEA [None]
  - CARDIAC DEATH [None]
  - CEREBROVASCULAR ACCIDENT [None]
  - CORONARY ARTERY DISEASE [None]
  - TACHYARRHYTHMIA [None]
  - PULMONARY CONGESTION [None]
